FAERS Safety Report 5750664-5 (Version None)
Quarter: 2008Q2

REPORT INFORMATION
  Report Type: 
  Country: None (occurrence: None)
  Receive Date: 20080528
  Receipt Date: 20080520
  Transmission Date: 20081010
  Serious: Yes (Hospitalization, Other)
  Sender: FDA-Public Use
  Company Number: TR-AVENTIS-200814689GDDC

PATIENT
  Sex: Female
  Weight: 82 kg

DRUGS (3)
  1. LANTUS [Suspect]
     Indication: DIABETES MELLITUS
     Route: 058
     Dates: start: 20071213, end: 20071214
  2. AUTOPEN INSULIN INJECTION PEN [Suspect]
  3. TEFOR [Concomitant]
     Dosage: DOSE: 1 X 1/2
     Route: 048

REACTIONS (4)
  - HYPOGLYCAEMIC COMA [None]
  - OVERDOSE [None]
  - PHARMACEUTICAL PRODUCT COMPLAINT [None]
  - WEIGHT DECREASED [None]
